FAERS Safety Report 24056257 (Version 1)
Quarter: 2024Q3

REPORT INFORMATION
  Report Type: Spontaneous
  Country: CA (occurrence: CA)
  Receive Date: 20240705
  Receipt Date: 20240705
  Transmission Date: 20241017
  Serious: Yes (Other)
  Sender: TEVA
  Company Number: CA-TEVA-VS-3214732

PATIENT
  Age: 70 Year
  Sex: Female

DRUGS (5)
  1. METHOTREXATE SODIUM [Suspect]
     Active Substance: METHOTREXATE SODIUM
     Indication: Uveitis
     Route: 065
  2. METHOTREXATE SODIUM [Suspect]
     Active Substance: METHOTREXATE SODIUM
     Indication: Uveitis
     Route: 065
  3. ADALIMUMAB [Concomitant]
     Active Substance: ADALIMUMAB\ISOPROPYL ALCOHOL
     Indication: Uveitis
     Route: 058
  4. ADALIMUMAB [Concomitant]
     Active Substance: ADALIMUMAB\ISOPROPYL ALCOHOL
     Indication: Uveitis
     Route: 058
  5. ADALIMUMAB [Concomitant]
     Active Substance: ADALIMUMAB\ISOPROPYL ALCOHOL
     Indication: Uveitis
     Route: 058

REACTIONS (7)
  - Macular oedema [Unknown]
  - Brain fog [Unknown]
  - Condition aggravated [Unknown]
  - Dizziness [Unknown]
  - Fatigue [Unknown]
  - Malaise [Unknown]
  - Off label use [Unknown]
